FAERS Safety Report 6480606-9 (Version None)
Quarter: 2009Q4

REPORT INFORMATION
  Report Type: 
  Country: None (occurrence: None)
  Receive Date: 20091203
  Receipt Date: 20091120
  Transmission Date: 20100525
  Serious: Yes (Death)
  Sender: FDA-Public Use
  Company Number: TPA2009A03869

PATIENT
  Age: 81 Year
  Sex: Female

DRUGS (3)
  1. PREVPAC [Suspect]
     Dates: start: 20091022
  2. AMOXICILLIN [Suspect]
     Dates: start: 20091022
  3. CLARITHROMYCIN [Suspect]

REACTIONS (1)
  - RESPIRATORY DISTRESS [None]
